FAERS Safety Report 10229031 (Version 2)
Quarter: 2014Q4

REPORT INFORMATION
  Report Type: Spontaneous
  Country: US (occurrence: US)
  Receive Date: 20140610
  Receipt Date: 20141114
  Transmission Date: 20150528
  Serious: Yes (Death)
  Sender: FDA-Public Use
  Company Number: US-GILEAD-2014-0104937

PATIENT
  Age: 46 Year
  Sex: Female

DRUGS (2)
  1. PROSTACYCLIN [Concomitant]
     Active Substance: EPOPROSTENOL
     Route: 055
  2. LETAIRIS [Suspect]
     Active Substance: AMBRISENTAN
     Indication: PULMONARY ARTERIAL HYPERTENSION
     Dosage: 10 MG, QD
     Route: 065

REACTIONS (2)
  - Disease progression [Fatal]
  - Condition aggravated [Fatal]
